FAERS Safety Report 9396263 (Version 2)
Quarter: 2013Q3

REPORT INFORMATION
  Report Type: Spontaneous
  Country: AU (occurrence: None)
  Receive Date: 20130702
  Receipt Date: 20130717
  Transmission Date: 20140515
  Serious: Yes (Hospitalization, Other)
  Sender: FDA-Public Use
  Company Number: GAM-184-13-AU

PATIENT
  Age: 60 Year
  Sex: Male

DRUGS (12)
  1. OCTAGAM [Suspect]
     Indication: TRANSPLANT REJECTION
     Route: 042
     Dates: start: 20130610, end: 20130610
  2. PREDNISOLONE [Concomitant]
  3. TACROLIMUS [Concomitant]
  4. MYCOPHENOLATE [Concomitant]
  5. ROSUVASTATIN [Concomitant]
  6. SULFAMETHOXAZOLE AND TRIMETHOPRIM [Concomitant]
  7. EZETIMBE [Concomitant]
  8. PANTOPRAZOLE [Concomitant]
  9. METOPROLOL [Concomitant]
  10. MAGNESIUM [Concomitant]
  11. METHYLDOPA [Concomitant]
  12. MOXONIDINE [Concomitant]

REACTIONS (5)
  - Pyrexia [None]
  - Chills [None]
  - Bacteraemia [None]
  - Suspected transmission of an infectious agent via product [None]
  - Neisseria infection [None]
